FAERS Safety Report 21990590 (Version 3)
Quarter: 2023Q1

REPORT INFORMATION
  Report Type: Spontaneous
  Country: US (occurrence: US)
  Receive Date: 20230214
  Receipt Date: 20230317
  Transmission Date: 20230418
  Serious: No
  Sender: FDA-Public Use
  Company Number: US-PFIZER INC-202300063394

PATIENT
  Age: 72 Year
  Sex: Female
  Weight: 66.68 kg

DRUGS (3)
  1. IBRANCE [Suspect]
     Active Substance: PALBOCICLIB
     Indication: Breast cancer metastatic
     Dosage: 125MG TABLETS BY MOUTH ONCE A DAY FOR 21 DAYS AND 7 DAYS OFF
     Route: 048
     Dates: start: 202106
  2. IBRANCE [Suspect]
     Active Substance: PALBOCICLIB
     Dosage: 125MG TABLETS BY MOUTH ONCE A DAY FOR 21 DAYS AND 7 DAYS OFF
     Route: 048
  3. IBRANCE [Suspect]
     Active Substance: PALBOCICLIB
     Dosage: 125MG TABLETS BY MOUTH ONCE A DAY FOR 21 DAYS AND 7 DAYS OFF
     Route: 048

REACTIONS (2)
  - Malaise [Unknown]
  - Irritability [Unknown]
